FAERS Safety Report 15298902 (Version 1)
Quarter: 2018Q3

REPORT INFORMATION
  Report Type: Other
  Country: FR (occurrence: FR)
  Receive Date: 20180821
  Receipt Date: 20180821
  Transmission Date: 20181010
  Serious: Yes (Other)
  Sender: FDA-Public Use
  Company Number: FR-DENTSPLY-2018SCDP000343

PATIENT
  Age: 55 Year
  Sex: Female

DRUGS (5)
  1. IOPAMIRON [Suspect]
     Active Substance: IOPAMIDOL
     Indication: PRODUCT USED FOR UNKNOWN INDICATION
     Dosage: 10 ML, TOTAL
     Route: 014
     Dates: start: 20171128, end: 20171128
  2. OROMONE [Concomitant]
     Active Substance: ESTRADIOL
     Indication: PRODUCT USED FOR UNKNOWN INDICATION
     Dosage: UNK
  3. DOLIPRANE [Concomitant]
     Active Substance: ACETAMINOPHEN
     Indication: PRODUCT USED FOR UNKNOWN INDICATION
     Dosage: 10 ML, TOTAL
     Route: 014
     Dates: start: 20171128, end: 20171128
  4. XYLOCAINE [Suspect]
     Active Substance: LIDOCAINE HYDROCHLORIDE
     Indication: PRODUCT USED FOR UNKNOWN INDICATION
     Dosage: 7 ML, TOTAL
     Route: 014
     Dates: start: 20171128, end: 20171128
  5. BETAMETHASONE SODIUM PHOSPHATE [Suspect]
     Active Substance: BETAMETHASONE SODIUM PHOSPHATE
     Indication: PRODUCT USED FOR UNKNOWN INDICATION
     Dosage: 1 DF, TOTAL (SUSPENSION INJECTABLE)
     Route: 014
     Dates: start: 20171128, end: 20171128

REACTIONS (3)
  - Asthenia [Recovered/Resolved]
  - Lacrimation increased [Recovered/Resolved]
  - Erythema [Recovered/Resolved]

NARRATIVE: CASE EVENT DATE: 20171129
